FAERS Safety Report 10074702 (Version 1)
Quarter: 2014Q2

REPORT INFORMATION
  Report Type: Spontaneous
  Country: US (occurrence: US)
  Receive Date: 20140414
  Receipt Date: 20140414
  Transmission Date: 20141212
  Serious: Yes (Other)
  Sender: FDA-Public Use
  Company Number: US-JNJFOC-20140404174

PATIENT
  Sex: Female

DRUGS (2)
  1. ZYRTEC [Suspect]
     Route: 048
  2. ZYRTEC [Suspect]
     Indication: SEASONAL ALLERGY
     Dosage: EVERY NIGHT AT 9PM
     Route: 048

REACTIONS (4)
  - Dependence [Unknown]
  - Withdrawal syndrome [Unknown]
  - Headache [Unknown]
  - Nausea [Unknown]
